FAERS Safety Report 12658943 (Version 1)
Quarter: 2016Q3

REPORT INFORMATION
  Report Type: Report from Study
  Country: NL (occurrence: NL)
  Receive Date: 20160817
  Receipt Date: 20160817
  Transmission Date: 20161109
  Serious: Yes (Hospitalization)
  Sender: FDA-Public Use
  Company Number: NL-ROCHE-1815088

PATIENT
  Sex: Female

DRUGS (9)
  1. TRASTUZUMAB [Suspect]
     Active Substance: TRASTUZUMAB
     Indication: HER-2 POSITIVE BREAST CANCER
     Route: 042
     Dates: start: 20151204
  2. FLUOROURACIL. [Suspect]
     Active Substance: FLUOROURACIL
     Indication: HER-2 POSITIVE BREAST CANCER
     Dosage: ON 15/JAN/2016 RECEIVED MOST RECENT DOSE.
     Route: 042
     Dates: start: 20151204
  3. EPIRUBICIN [Suspect]
     Active Substance: EPIRUBICIN
     Indication: HER-2 POSITIVE BREAST CANCER
     Dosage: ON  15/JAN/2016 SHE RECEIVED MOST RECENT DOSE.
     Route: 042
     Dates: start: 20151204
  4. PERTUZUMAB [Suspect]
     Active Substance: PERTUZUMAB
     Dosage: ON 17/JUN/2016, SHE RECEIVED MOST RECENT DOSE
     Route: 042
  5. TRASTUZUMAB [Suspect]
     Active Substance: TRASTUZUMAB
     Dosage: ON 17/JUN/2016, SHE RECEIVED MOST RECENT DOSE.
     Route: 042
  6. CARBOPLATIN. [Suspect]
     Active Substance: CARBOPLATIN
     Indication: HER-2 POSITIVE BREAST CANCER
     Dosage: ON  17/JUN/2016 SHE RECEIVED MOST RECENT DOSE.
     Route: 042
     Dates: start: 20160205
  7. PERTUZUMAB [Suspect]
     Active Substance: PERTUZUMAB
     Indication: HER-2 POSITIVE BREAST CANCER
     Route: 042
     Dates: start: 20151204
  8. PACLITAXEL. [Suspect]
     Active Substance: PACLITAXEL
     Indication: HER-2 POSITIVE BREAST CANCER
     Dosage: 131/12 G.?ON 17/JUN/2016SHE RECEIVED MOST RECENT DOSE.
     Route: 042
     Dates: start: 20160205
  9. CYCLOPHOSPHAMIDE. [Suspect]
     Active Substance: CYCLOPHOSPHAMIDE
     Indication: HER-2 POSITIVE BREAST CANCER
     Dosage: ON 15/JAN/2016, SHE RECEIVED MOST RECENT DOSE.
     Route: 042
     Dates: start: 20151204

REACTIONS (1)
  - Wound infection [Recovered/Resolved with Sequelae]

NARRATIVE: CASE EVENT DATE: 20160721
